FAERS Safety Report 9817565 (Version 2)
Quarter: 2014Q1

REPORT INFORMATION
  Report Type: Spontaneous
  Country: US (occurrence: US)
  Receive Date: 20140115
  Receipt Date: 20140227
  Transmission Date: 20141002
  Serious: Yes (Other)
  Sender: FDA-Public Use
  Company Number: US-ROCHE-1330944

PATIENT
  Sex: Male

DRUGS (2)
  1. TAMIFLU [Suspect]
     Indication: INFLUENZA
     Dosage: LAST DOSE PRIOR TO SAE 06/JAN/2014, EXPIRY DATE /OCT/2016
     Route: 048
     Dates: start: 20130105
  2. METFORMIN HYDROCHLORIDE [Concomitant]
     Indication: BLOOD GLUCOSE
     Route: 065

REACTIONS (7)
  - Delirium [Unknown]
  - Hypersensitivity [Unknown]
  - Fatigue [Unknown]
  - Thirst [Unknown]
  - Nasal congestion [Unknown]
  - Dyspnoea [Unknown]
  - Body temperature increased [Unknown]
